FAERS Safety Report 23854430 (Version 3)
Quarter: 2024Q2

REPORT INFORMATION
  Report Type: Spontaneous
  Country: US (occurrence: US)
  Receive Date: 20240514
  Receipt Date: 20240619
  Transmission Date: 20240716
  Serious: No
  Sender: FDA-Public Use
  Company Number: US-IPSEN Group, Research and Development-2024-07809

PATIENT
  Age: 54 Year
  Sex: Male
  Weight: 98 kg

DRUGS (1)
  1. SOMATULINE DEPOT [Suspect]
     Active Substance: LANREOTIDE ACETATE
     Indication: Gastroenteropancreatic neuroendocrine tumour disease
     Dosage: DEEP SUBCUTANEOUS
     Route: 058
     Dates: start: 20230922

REACTIONS (4)
  - Injection site pain [Unknown]
  - Arthralgia [Recovered/Resolved]
  - Wrong technique in product usage process [Unknown]
  - Wrong technique in product usage process [Unknown]

NARRATIVE: CASE EVENT DATE: 20231201
